FAERS Safety Report 4732228-5 (Version None)
Quarter: 2005Q3

REPORT INFORMATION
  Report Type: 
  Country: None (occurrence: None)
  Receive Date: 20050725
  Receipt Date: 20040720
  Transmission Date: 20060218
  Serious: Yes (Death, Other)
  Sender: FDA-Public Use
  Company Number: USA-2004-0016076

PATIENT
  Age: 35 Year
  Sex: Female
  Weight: 55.8 kg

DRUGS (7)
  1. MORPHINE SULFATE [Suspect]
  2. OXYCONTIN [Suspect]
  3. COCAINE (COCAINE) [Suspect]
  4. TEMAZEPAM [Suspect]
  5. DOXYLAMINE (DOXYLAMINE) [Suspect]
  6. DEXTROMETHORPHAN HYDROBROMIDE [Suspect]
  7. NICOTINE [Suspect]

REACTIONS (3)
  - ACCIDENTAL OVERDOSE [None]
  - MULTIPLE DRUG OVERDOSE [None]
  - POLYSUBSTANCE ABUSE [None]
